FAERS Safety Report 15920708 (Version 3)
Quarter: 2020Q2

REPORT INFORMATION
  Report Type: Spontaneous
  Country: CZ (occurrence: CZ)
  Receive Date: 20190205
  Receipt Date: 20200408
  Transmission Date: 20200713
  Serious: Yes (Hospitalization, Other)
  Sender: FDA-Public Use
  Company Number: CZ-MYLANLABS-2019M1009600

PATIENT
  Sex: Female

DRUGS (2)
  1. LINEZOLID. [Suspect]
     Active Substance: LINEZOLID
     Indication: MYCOBACTERIUM ABSCESSUS INFECTION
  2. LINEZOLID. [Suspect]
     Active Substance: LINEZOLID
     Indication: PLEURAL FIBROSIS
     Dosage: UNK
     Route: 042

REACTIONS (8)
  - Lactic acidosis [Unknown]
  - Kussmaul respiration [Unknown]
  - Vomiting [Unknown]
  - Neuropathy peripheral [Unknown]
  - Toxicity to various agents [Unknown]
  - Cognitive disorder [Unknown]
  - Nausea [Unknown]
  - Bone marrow failure [Unknown]
